FAERS Safety Report 7207551-5 (Version None)
Quarter: 2010Q4

REPORT INFORMATION
  Report Type: 
  Country: None (occurrence: None)
  Receive Date: 20101217
  Receipt Date: 20101203
  Transmission Date: 20110411
  Serious: Yes (Hospitalization)
  Sender: FDA-Public Use
  Company Number: 1000017714

PATIENT
  Sex: Male

DRUGS (1)
  1. ESCITALOPRAM [Suspect]
     Dates: start: 20100101, end: 20100101

REACTIONS (5)
  - CONVULSION [None]
  - DIZZINESS [None]
  - FALL [None]
  - GASTROINTESTINAL DISORDER [None]
  - SCAPULA FRACTURE [None]
